FAERS Safety Report 8349966-8 (Version None)
Quarter: 2012Q2

REPORT INFORMATION
  Report Type: 
  Country: None (occurrence: None)
  Receive Date: 20120510
  Receipt Date: 20120425
  Transmission Date: 20120825
  Serious: Yes (Congenital Anomaly, Other)
  Sender: FDA-Public Use
  Company Number: GB-PFIZER INC-IDA-00465

PATIENT
  Sex: Female
  Weight: 3.15 kg

DRUGS (5)
  1. INDERAL [Suspect]
     Indication: PRODUCT USED FOR UNKNOWN INDICATION
     Dosage: UNK
     Route: 064
  2. CAMPRAL [Suspect]
     Indication: ALCOHOLISM
     Dosage: UNK
     Route: 064
     Dates: start: 20100301, end: 20100701
  3. THIAMINE [Suspect]
     Indication: PRODUCT USED FOR UNKNOWN INDICATION
     Dosage: 200 MG, 1X/DAY
     Route: 064
     Dates: start: 20100301
  4. VENLAFAXINE HCL [Suspect]
     Indication: PRODUCT USED FOR UNKNOWN INDICATION
     Dosage: UNK
     Route: 064
  5. VITAMIN B COMPLEX CAP [Suspect]
     Indication: PRODUCT USED FOR UNKNOWN INDICATION
     Dosage: 2 DF, 1X/DAY
     Route: 064
     Dates: start: 20100301

REACTIONS (1)
  - FOETAL ALCOHOL SYNDROME [None]
